FAERS Safety Report 9736993 (Version 2)
Quarter: 2015Q3

REPORT INFORMATION
  Report Type: Spontaneous
  Country: US (occurrence: US)
  Receive Date: 20131206
  Receipt Date: 20150804
  Transmission Date: 20151125
  Serious: No
  Sender: FDA-Public Use
  Company Number: US-GILEAD-2009-0023168

PATIENT
  Age: 68 Year
  Sex: Female
  Weight: 71.67 kg

DRUGS (11)
  1. METOPROLOL [Concomitant]
     Active Substance: METOPROLOL
  2. ASPIRIN. [Concomitant]
     Active Substance: ASPIRIN
     Route: 048
  3. DILTIAZEM HYDROCHLORIDE EXTENDED RELEASE [Concomitant]
     Active Substance: DILTIAZEM HYDROCHLORIDE
     Route: 048
  4. LETAIRIS [Suspect]
     Active Substance: AMBRISENTAN
     Indication: PULMONARY ARTERIAL HYPERTENSION
     Route: 048
     Dates: start: 20090625
  5. COZAAR [Concomitant]
     Active Substance: LOSARTAN POTASSIUM
  6. NEXIUM [Concomitant]
     Active Substance: ESOMEPRAZOLE MAGNESIUM
  7. REMICADE [Concomitant]
     Active Substance: INFLIXIMAB
  8. FOLIC ACID. [Concomitant]
     Active Substance: FOLIC ACID
  9. SIMVASTATIN. [Concomitant]
     Active Substance: SIMVASTATIN
  10. METHOTREXATE [Concomitant]
     Active Substance: METHOTREXATE
     Route: 048
  11. METFORMIN HCL 100% [Concomitant]

REACTIONS (1)
  - Dyspnoea [Unknown]
